FAERS Safety Report 5756504-2 (Version None)
Quarter: 2008Q2

REPORT INFORMATION
  Report Type: 
  Country: None (occurrence: None)
  Receive Date: 20080603
  Receipt Date: 20080523
  Transmission Date: 20081010
  Serious: Yes (Other)
  Sender: FDA-Public Use
  Company Number: JP-JNJFOC-20080405600

PATIENT
  Sex: Female

DRUGS (7)
  1. TOPINA [Suspect]
     Indication: BACK PAIN
     Route: 048
  2. GABAPENTIN [Concomitant]
     Indication: DRUG USE FOR UNKNOWN INDICATION
     Route: 048
  3. MYSLEE [Concomitant]
     Indication: DRUG USE FOR UNKNOWN INDICATION
     Route: 048
  4. SILECE [Concomitant]
     Indication: DRUG USE FOR UNKNOWN INDICATION
     Route: 048
  5. KAMI-KIHI-TO [Concomitant]
     Indication: DRUG USE FOR UNKNOWN INDICATION
     Route: 048
  6. MOHRUS TAPE [Concomitant]
     Route: 061
  7. VOLTAREN [Concomitant]
     Indication: DRUG USE FOR UNKNOWN INDICATION

REACTIONS (3)
  - COLOUR BLINDNESS [None]
  - HEADACHE [None]
  - MENTAL IMPAIRMENT [None]
